FAERS Safety Report 4723211-4 (Version None)
Quarter: 2005Q3

REPORT INFORMATION
  Report Type: 
  Country: None (occurrence: None)
  Receive Date: 20050720
  Receipt Date: 20050706
  Transmission Date: 20060218
  Serious: Yes (Other)
  Sender: FDA-Public Use
  Company Number: PHEH2005US07521

PATIENT
  Age: 77 Year
  Sex: Female

DRUGS (4)
  1. VISUDYNE [Suspect]
     Dates: start: 20030101, end: 20030101
  2. LISINOPRIL [Concomitant]
  3. LEVOTHYROXINE SODIUM [Concomitant]
  4. LORAZEPAM [Concomitant]

REACTIONS (1)
  - BLADDER CANCER [None]
